FAERS Safety Report 25229864 (Version 1)
Quarter: 2025Q2

REPORT INFORMATION
  Report Type: Spontaneous
  Country: SE (occurrence: SE)
  Receive Date: 20250423
  Receipt Date: 20250423
  Transmission Date: 20250717
  Serious: Yes (Other)
  Sender: AUROBINDO
  Company Number: SE-AUROBINDO-AUR-APL-2025-021415

PATIENT
  Sex: Female

DRUGS (1)
  1. PRAMIPEXOLE [Suspect]
     Active Substance: PRAMIPEXOLE
     Indication: Restless legs syndrome
     Route: 065

REACTIONS (5)
  - Suicidal ideation [Unknown]
  - Drug dependence [Unknown]
  - Gambling disorder [Unknown]
  - Mental status changes [Unknown]
  - Overdose [Unknown]
